FAERS Safety Report 6852394-5 (Version None)
Quarter: 2010Q3

REPORT INFORMATION
  Report Type: 
  Country: None (occurrence: None)
  Receive Date: 20100717
  Receipt Date: 20071112
  Transmission Date: 20110219
  Serious: No
  Sender: FDA-Public Use
  Company Number: US-PFIZER INC-2007097098

PATIENT
  Sex: Female
  Weight: 56.363 kg

DRUGS (13)
  1. CHANTIX [Suspect]
     Indication: SMOKING CESSATION THERAPY
     Dates: start: 20071001, end: 20071110
  2. SPIRIVA [Concomitant]
     Dates: start: 20071001
  3. AVAPRO [Concomitant]
  4. AMLODIPINE [Concomitant]
  5. CIMETIDINE [Concomitant]
  6. PLAVIX [Concomitant]
  7. METOPROLOL [Concomitant]
  8. FISH OIL [Concomitant]
  9. PHENOBARBITAL [Concomitant]
     Indication: MUSCLE SPASMS
  10. VISTARIL [Concomitant]
  11. SYMBICORT [Concomitant]
  12. TEMAZEPAM [Concomitant]
  13. ADVAIR DISKUS 100/50 [Concomitant]
     Dates: end: 20071001

REACTIONS (3)
  - ABNORMAL DREAMS [None]
  - MIDDLE INSOMNIA [None]
  - VOMITING [None]
